FAERS Safety Report 6315087-9 (Version None)
Quarter: 2009Q3

REPORT INFORMATION
  Report Type: 
  Country: None (occurrence: None)
  Receive Date: 20090818
  Receipt Date: 20090818
  Transmission Date: 20100115
  Serious: Yes (Life-Threatening, Other)
  Sender: FDA-Public Use
  Company Number: None

PATIENT
  Age: 53 Year
  Sex: Female
  Weight: 96.1626 kg

DRUGS (2)
  1. LISINOPRIL [Suspect]
     Indication: HYPERTENSION
     Dosage: ANY ANY PO   SINGLE DOSE
     Route: 048
     Dates: start: 20090804, end: 20090804
  2. TIZANIDINE HCL [Suspect]
     Indication: FIBROMYALGIA
     Dosage: 4 MG TWICE DAILY, 8MG BEDTIME 3 ITMES DAY PO
     Route: 048
     Dates: start: 20030201, end: 20090818

REACTIONS (2)
  - BLOOD PRESSURE DECREASED [None]
  - DRUG INTERACTION [None]
